FAERS Safety Report 6628645-9 (Version None)
Quarter: 2010Q1

REPORT INFORMATION
  Report Type: 
  Country: None (occurrence: None)
  Receive Date: 20100311
  Receipt Date: 20100308
  Transmission Date: 20100710
  Serious: Yes (Other)
  Sender: FDA-Public Use
  Company Number: JP-RB-004195-10

PATIENT
  Age: 53 Year
  Sex: Female

DRUGS (2)
  1. BUPRENORPHINE HYDROCHLORIDE [Suspect]
     Dosage: DAILY DOSE KNOWN, UNIT DOSE AND FREQUENCY UNKNOWN
     Route: 065
  2. MIDAZOLAM HCL [Concomitant]
     Indication: DRUG USE FOR UNKNOWN INDICATION
     Dosage: DAILY DOSE KNOWN, UNIT DOSE AND FREQUENCY UNKNOWN
     Route: 065

REACTIONS (6)
  - ASPHYXIA [None]
  - CARDIO-RESPIRATORY ARREST [None]
  - DEPRESSED LEVEL OF CONSCIOUSNESS [None]
  - RESPIRATORY DEPRESSION [None]
  - SPUTUM RETENTION [None]
  - VOMITING [None]
